FAERS Safety Report 7608525-2 (Version None)
Quarter: 2011Q3

REPORT INFORMATION
  Report Type: 
  Country: None (occurrence: None)
  Receive Date: 20110714
  Receipt Date: 20110701
  Transmission Date: 20111222
  Serious: Yes (Other)
  Sender: FDA-Public Use
  Company Number: PHHY2011TR58539

PATIENT
  Age: 74 Year
  Sex: Female

DRUGS (5)
  1. ZOLEDRONOC ACID [Suspect]
     Indication: OSTEOPOROSIS
     Route: 042
     Dates: start: 20110627
  2. IBRUPROFEN [Concomitant]
  3. NSAID'S [Concomitant]
  4. CALCIUM CARBONATE [Concomitant]
  5. MINOSET [Concomitant]

REACTIONS (1)
  - GASTRIC HAEMORRHAGE [None]
